FAERS Safety Report 25072539 (Version 2)
Quarter: 2025Q1

REPORT INFORMATION
  Report Type: Spontaneous
  Country: IR (occurrence: IR)
  Receive Date: 20250313
  Receipt Date: 20250326
  Transmission Date: 20250408
  Serious: Yes (Life-Threatening)
  Sender: ROCHE
  Company Number: IR-ROCHE-10000225520

PATIENT
  Age: 37 Year
  Sex: Female

DRUGS (3)
  1. PERJETA [Suspect]
     Active Substance: PERTUZUMAB
     Indication: Breast cancer
     Route: 042
  2. HERCEPTIN [Suspect]
     Active Substance: TRASTUZUMAB
     Indication: Product used for unknown indication
     Route: 065
  3. HERCEPTIN [Suspect]
     Active Substance: TRASTUZUMAB
     Route: 065

REACTIONS (7)
  - Hypoaesthesia [Unknown]
  - Muscle spasms [Unknown]
  - Back pain [Unknown]
  - Myalgia [Unknown]
  - Dyspnoea [Unknown]
  - Product physical consistency issue [Unknown]
  - Product colour issue [Unknown]
